FAERS Safety Report 21791549 (Version 2)
Quarter: 2023Q1

REPORT INFORMATION
  Report Type: Report from Study
  Country: US (occurrence: US)
  Receive Date: 20221228
  Receipt Date: 20230321
  Transmission Date: 20230417
  Serious: No
  Sender: FDA-Public Use
  Company Number: US-ABBVIE-4216333

PATIENT
  Age: 23 Year
  Sex: Female

DRUGS (4)
  1. HUMIRA [Suspect]
     Active Substance: ADALIMUMAB
     Indication: Crohn^s disease
     Dosage: THERAPY DISCONTINUED DATE 2022
     Route: 058
     Dates: start: 20221126
  2. HUMIRA [Suspect]
     Active Substance: ADALIMUMAB
     Dates: start: 20221224
  3. HUMIRA [Suspect]
     Active Substance: ADALIMUMAB
     Dosage: CITRATE FREE
     Dates: start: 20230107
  4. HUMIRA [Suspect]
     Active Substance: ADALIMUMAB
     Dosage: THERAPY DISCONTINUED DATE DEC 2022
     Dates: start: 20221210

REACTIONS (7)
  - Adverse drug reaction [Recovered/Resolved]
  - Adverse drug reaction [Recovered/Resolved]
  - Injection site swelling [Not Recovered/Not Resolved]
  - Adverse drug reaction [Recovered/Resolved]
  - Headache [Unknown]
  - Nausea [Unknown]
  - Adverse drug reaction [Recovered/Resolved]

NARRATIVE: CASE EVENT DATE: 20221126
